FAERS Safety Report 7488573-6 (Version None)
Quarter: 2011Q2

REPORT INFORMATION
  Report Type: 
  Country: None (occurrence: None)
  Receive Date: 20110518
  Receipt Date: 20110412
  Transmission Date: 20111010
  Serious: Yes (Other)
  Sender: FDA-Public Use
  Company Number: US-BAYER-201016048NA

PATIENT
  Sex: Female
  Weight: 75.737 kg

DRUGS (8)
  1. YASMIN [Suspect]
     Dosage: UNK UNK, QD
     Route: 048
  2. BUTALBITAL [Concomitant]
     Indication: MIGRAINE
     Dosage: UNK
     Dates: start: 20050101, end: 20100101
  3. NAPROSYN [Concomitant]
     Indication: MIGRAINE
  4. FLUOXETINE [Concomitant]
     Indication: DEPRESSION
     Dosage: UNK
     Dates: start: 20100101
  5. FIORICET [Concomitant]
     Indication: MIGRAINE
     Dosage: UNK
     Dates: start: 20071001
  6. YAZ [Suspect]
     Indication: CONTRACEPTION
     Dosage: UNK UNK, QD
     Route: 048
     Dates: start: 20080101, end: 20090101
  7. OMEPRAZOLE [Concomitant]
     Indication: GASTROOESOPHAGEAL REFLUX DISEASE
     Dosage: UNK
     Dates: start: 20090101, end: 20100101
  8. XANAX [Concomitant]
     Indication: ANXIETY
     Dosage: 0.25 MG, UNK
     Dates: start: 20070301

REACTIONS (6)
  - HIATUS HERNIA [None]
  - OESOPHAGEAL INJURY [None]
  - CHOLECYSTECTOMY [None]
  - OESOPHAGITIS [None]
  - INJURY [None]
  - MENTAL DISORDER [None]
